FAERS Safety Report 4378161-2 (Version None)
Quarter: 2004Q2

REPORT INFORMATION
  Report Type: 
  Country: None (occurrence: None)
  Receive Date: 20040609
  Receipt Date: 20040525
  Transmission Date: 20050107
  Serious: Yes (Other)
  Sender: FDA-Public Use
  Company Number: USA040362680

PATIENT
  Age: 62 Year
  Sex: Female
  Weight: 65 kg

DRUGS (3)
  1. FORTEO [Suspect]
     Dosage: 20 UG/1 DAY
     Dates: start: 20040109
  2. KLONOPIN [Concomitant]
  3. PAMELOR [Concomitant]

REACTIONS (9)
  - DIARRHOEA [None]
  - GASTRIC DISORDER [None]
  - INJECTION SITE ERYTHEMA [None]
  - INJECTION SITE HAEMORRHAGE [None]
  - IRON DEFICIENCY ANAEMIA [None]
  - MYELOPROLIFERATIVE DISORDER [None]
  - PLATELET COUNT DECREASED [None]
  - PLATELET COUNT INCREASED [None]
  - POLYCYTHAEMIA VERA [None]
